FAERS Safety Report 6861551-3 (Version None)
Quarter: 2010Q3

REPORT INFORMATION
  Report Type: 
  Country: None (occurrence: None)
  Receive Date: 20100721
  Receipt Date: 20100715
  Transmission Date: 20110219
  Serious: Yes (Other)
  Sender: FDA-Public Use
  Company Number: US-RB-012825-10

PATIENT
  Age: 82 Year
  Sex: Female

DRUGS (3)
  1. MUCINEX DM [Suspect]
     Dosage: PATIENT TOOK ONE TABLET, AND 12 HOURS LATER TOOK ANOTHER TABLET
     Route: 048
     Dates: start: 20100101
  2. MUCINEX DM [Suspect]
     Indication: COUGH
     Dosage: PATIENT TOOK ONE TABLET, AND 12 HOURS LATER TOOK ANOTHER TABLET
     Route: 048
     Dates: start: 20100101
  3. TYLENOL [Concomitant]

REACTIONS (6)
  - BLOOD PRESSURE INCREASED [None]
  - CONFUSIONAL STATE [None]
  - INCREASED UPPER AIRWAY SECRETION [None]
  - NAUSEA [None]
  - NERVOUSNESS [None]
  - URTICARIA [None]
